FAERS Safety Report 5224393-0 (Version None)
Quarter: 2007Q1

REPORT INFORMATION
  Report Type: 
  Country: None (occurrence: None)
  Receive Date: 20070130
  Receipt Date: 20061212
  Transmission Date: 20070707
  Serious: Yes (Other)
  Sender: FDA-Public Use
  Company Number: US-PFIZER INC-2006029689

PATIENT
  Sex: Female
  Weight: 183.7 kg

DRUGS (1)
  1. BEXTRA [Suspect]
     Indication: ARTHRITIS

REACTIONS (3)
  - DRUG HYPERSENSITIVITY [None]
  - ECCHYMOSIS [None]
  - STEVENS-JOHNSON SYNDROME [None]
